FAERS Safety Report 4477076-9 (Version None)
Quarter: 2004Q4

REPORT INFORMATION
  Report Type: 
  Country: None (occurrence: None)
  Receive Date: 20041012
  Receipt Date: 20041001
  Transmission Date: 20050328
  Serious: Yes (Other)
  Sender: FDA-Public Use
  Company Number: 163-20785-04100110

PATIENT
  Sex: Male

DRUGS (3)
  1. THALOMID [Suspect]
     Indication: PROSTATE CANCER
     Dosage: 200 MG, QD, ORAL
     Route: 048
     Dates: start: 20000818
  2. DOCETAXEL (DOCETAXEL) [Suspect]
     Indication: PROSTATE CANCER
     Dosage: 30 MG/M2, OVER 30 MIN QW ON DAY 2  FOR 3 WKS Q28D, INTRAVENOUS
     Route: 042
     Dates: start: 20000818
  3. DECADRON [Suspect]
     Indication: PROSTATE CANCER
     Dosage: 8 MG, X1 ON DAY 1, BID ON DAY 2 X3 WK Q28D, ORAL
     Route: 048
     Dates: start: 20000818

REACTIONS (5)
  - DIARRHOEA [None]
  - HYPERMAGNESAEMIA [None]
  - MALIGNANT NEOPLASM PROGRESSION [None]
  - MUSCULAR WEAKNESS [None]
  - PROSTATE CANCER [None]
